FAERS Safety Report 15711305 (Version 1)
Quarter: 2018Q4

REPORT INFORMATION
  Report Type: Spontaneous
  Country: GB (occurrence: GB)
  Receive Date: 20181211
  Receipt Date: 20181211
  Transmission Date: 20190205
  Serious: Yes (Hospitalization)
  Sender: FDA-Public Use
  Company Number: GB-GILEAD-2018-0379684

PATIENT
  Age: 74 Year
  Sex: Male

DRUGS (16)
  1. OMEPRAZOLE SODIUM [Concomitant]
     Active Substance: OMEPRAZOLE SODIUM
  2. QUININE SULFATE. [Suspect]
     Active Substance: QUININE SULFATE
     Indication: MUSCLE SPASMS
     Route: 048
     Dates: end: 20181029
  3. CARVEDILOL. [Concomitant]
     Active Substance: CARVEDILOL
  4. RANOLAZINE. [Suspect]
     Active Substance: RANOLAZINE
     Indication: ANGINA PECTORIS
     Dosage: 750 MG, QD
     Route: 048
     Dates: end: 20181030
  5. BUMETANIDE. [Concomitant]
     Active Substance: BUMETANIDE
  6. GABAPENTIN. [Concomitant]
     Active Substance: GABAPENTIN
  7. CLOPIDOGREL [Concomitant]
     Active Substance: CLOPIDOGREL BISULFATE
  8. NICORANDIL [Concomitant]
     Active Substance: NICORANDIL
  9. INSULIN ASPART [Concomitant]
     Active Substance: INSULIN ASPART
  10. FERROUS SULFATE. [Concomitant]
     Active Substance: FERROUS SULFATE
  11. ATORVASTATIN [Concomitant]
     Active Substance: ATORVASTATIN
  12. ISOSORBIDE MONONITRATE. [Concomitant]
     Active Substance: ISOSORBIDE MONONITRATE
  13. LISINOPRIL. [Concomitant]
     Active Substance: LISINOPRIL
  14. METOCLOPRAMIDE. [Suspect]
     Active Substance: METOCLOPRAMIDE
     Indication: MALAISE
     Route: 048
     Dates: end: 20181030
  15. PARACETAMOL [Concomitant]
     Active Substance: ACETAMINOPHEN
  16. ACETYLSALICYLIC ACID [Concomitant]
     Active Substance: ASPIRIN

REACTIONS (2)
  - Electrocardiogram QT prolonged [Recovering/Resolving]
  - Drug interaction [Recovering/Resolving]
